FAERS Safety Report 5044591-9 (Version None)
Quarter: 2006Q2

REPORT INFORMATION
  Report Type: 
  Country: None (occurrence: None)
  Receive Date: 20060629
  Receipt Date: 20060623
  Transmission Date: 20061013
  Serious: Yes (Other)
  Sender: FDA-Public Use
  Company Number: 105463ISR

PATIENT
  Age: 28 Year
  Sex: Male

DRUGS (1)
  1. GLATIRAMER ACETATE [Suspect]
     Indication: MULTIPLE SCLEROSIS
     Dosage: 20 MILLIGRAM, SUBCUTANEOUS
     Route: 058
     Dates: start: 20030608, end: 20041108

REACTIONS (3)
  - EMBOLIA CUTIS MEDICAMENTOSA [None]
  - INJECTION SITE INDURATION [None]
  - INJECTION SITE NECROSIS [None]
